FAERS Safety Report 10438590 (Version 2)
Quarter: 2014Q3

REPORT INFORMATION
  Report Type: Report from Study
  Country: US (occurrence: US)
  Receive Date: 20140908
  Receipt Date: 20140921
  Transmission Date: 20150326
  Serious: Yes (Hospitalization, Other)
  Sender: FDA-Public Use
  Company Number: US-BRISTOL-MYERS SQUIBB COMPANY-21349089

PATIENT
  Age: 86 Year
  Sex: Female

DRUGS (3)
  1. ELIQUIS [Suspect]
     Active Substance: APIXABAN
     Dates: start: 20140526
  2. AMLODIPINE [Concomitant]
     Active Substance: AMLODIPINE BESYLATE
  3. SOTALOL. [Concomitant]
     Active Substance: SOTALOL

REACTIONS (4)
  - Blood sodium decreased [Unknown]
  - Renal disorder [Unknown]
  - Constipation [Unknown]
  - Abdominal discomfort [Unknown]
